FAERS Safety Report 9996548 (Version 1)
Quarter: 2014Q1

REPORT INFORMATION
  Report Type: Spontaneous
  Country: JP (occurrence: JP)
  Receive Date: 20140311
  Receipt Date: 20140311
  Transmission Date: 20141002
  Serious: Yes (Hospitalization)
  Sender: FDA-Public Use
  Company Number: PHHY2014JP024853

PATIENT
  Age: 72 Year
  Sex: Male

DRUGS (6)
  1. OXALIPLATIN [Suspect]
     Indication: MALIGNANT ASCITES
     Dates: start: 200612
  2. OXALIPLATIN [Suspect]
     Dates: start: 20070423
  3. FOLINIC ACID [Suspect]
     Indication: MALIGNANT ASCITES
     Dates: start: 200612
  4. FOLINIC ACID [Suspect]
     Dates: start: 20070423
  5. 5-FLUOROURACIL [Suspect]
     Indication: MALIGNANT ASCITES
     Dates: start: 200612
  6. 5-FLUOROURACIL [Suspect]
     Dates: start: 20070423

REACTIONS (5)
  - Interstitial lung disease [Recovered/Resolved]
  - Pyrexia [Recovered/Resolved]
  - Cough [Recovered/Resolved]
  - Chest X-ray abnormal [Recovered/Resolved]
  - Rash generalised [Recovered/Resolved]
